FAERS Safety Report 23509772 (Version 1)
Quarter: 2024Q1

REPORT INFORMATION
  Report Type: Spontaneous
  Country: PH (occurrence: PH)
  Receive Date: 20240210
  Receipt Date: 20240210
  Transmission Date: 20240410
  Serious: Yes (Death, Other)
  Sender: FDA-Public Use
  Company Number: PH-002147023-NVSC2022PH263051

PATIENT
  Sex: Female

DRUGS (1)
  1. FULVESTRANT [Suspect]
     Active Substance: FULVESTRANT
     Indication: Product used for unknown indication
     Dosage: UNK, CYCLIC (HORMONAL THERAPY GIVEN, 4 CYCLES)
     Route: 030

REACTIONS (6)
  - Cellulitis [Fatal]
  - Sepsis [Fatal]
  - Urinary tract infection [Fatal]
  - Hyperglycaemia [Unknown]
  - Rash [Unknown]
  - Fatigue [Unknown]
